FAERS Safety Report 4713575-X (Version None)
Quarter: 2005Q3

REPORT INFORMATION
  Report Type: 
  Country: None (occurrence: None)
  Receive Date: 20050713
  Receipt Date: 20050706
  Transmission Date: 20060218
  Serious: Yes (Hospitalization, Disabling, Other)
  Sender: FDA-Public Use
  Company Number: 200516195GDDC

PATIENT
  Age: 79 Year
  Sex: Female

DRUGS (1)
  1. MINIRIN [Suspect]
     Indication: DIABETES INSIPIDUS
     Route: 045
     Dates: start: 20050503, end: 20050510

REACTIONS (1)
  - ACUTE LEFT VENTRICULAR FAILURE [None]
